FAERS Safety Report 5351677-8 (Version None)
Quarter: 2007Q2

REPORT INFORMATION
  Report Type: 
  Country: None (occurrence: None)
  Receive Date: 20070518
  Receipt Date: 20070122
  Transmission Date: 20071010
  Serious: No
  Sender: FDA-Public Use
  Company Number: TPA2007A00187

PATIENT
  Age: 42 Year
  Sex: Male
  Weight: 74.8435 kg

DRUGS (3)
  1. ROZEREM [Suspect]
     Dosage: PER ORAL
     Route: 048
  2. LEXIRA (FOSAMPRENAVIR) [Concomitant]
  3. EMTRICITABINE (EMTRICITABINE) [Concomitant]

REACTIONS (1)
  - DRUG INEFFECTIVE [None]
